FAERS Safety Report 25615223 (Version 1)
Quarter: 2025Q3

REPORT INFORMATION
  Report Type: Spontaneous
  Country: US (occurrence: US)
  Receive Date: 20250729
  Receipt Date: 20250729
  Transmission Date: 20251020
  Serious: Yes (Other)
  Sender: NOVO NORDISK
  Company Number: US-NOVOPROD-1484180

PATIENT
  Sex: Female

DRUGS (1)
  1. TRESIBA [Suspect]
     Active Substance: INSULIN DEGLUDEC
     Indication: Diabetes mellitus
     Dosage: 5 IU, QD
     Route: 058

REACTIONS (4)
  - Dementia [Unknown]
  - Cardiac disorder [Unknown]
  - Renal disorder [Unknown]
  - Chronic obstructive pulmonary disease [Unknown]
